FAERS Safety Report 24376619 (Version 5)
Quarter: 2024Q4

REPORT INFORMATION
  Report Type: Spontaneous
  Country: JP (occurrence: JP)
  Receive Date: 20240930
  Receipt Date: 20241219
  Transmission Date: 20250115
  Serious: Yes (Other)
  Sender: MERCK
  Company Number: JP-MSD-M2024-38184

PATIENT
  Age: 83 Year
  Sex: Male
  Weight: 41 kg

DRUGS (13)
  1. BELSOMRA [Suspect]
     Active Substance: SUVOREXANT
     Indication: Insomnia
     Dosage: 15 MILLIGRAM, QD
     Route: 048
     Dates: start: 20190816, end: 202409
  2. BELSOMRA [Suspect]
     Active Substance: SUVOREXANT
     Dosage: 110 DOSAGE FORM
     Route: 048
     Dates: start: 20240916, end: 20240916
  3. BELSOMRA [Suspect]
     Active Substance: SUVOREXANT
     Dosage: 10 DOSAGE FORM
     Route: 048
     Dates: start: 20240917, end: 20240917
  4. AMBROXOL HYDROCHLORIDE [Concomitant]
     Active Substance: AMBROXOL HYDROCHLORIDE
     Indication: Combined pulmonary fibrosis and emphysema
     Dosage: 45 MILLIGRAM, QD
     Route: 048
     Dates: end: 20240917
  5. CARVEDILOL [Concomitant]
     Active Substance: CARVEDILOL
     Indication: Hypertension
     Dosage: 2.5 MILLIGRAM, QD
     Route: 048
     Dates: end: 20240917
  6. ASPIRIN [Concomitant]
     Active Substance: ASPIRIN
     Indication: Myocardial infarction
     Dosage: 100 MILLIGRAM, QD
     Route: 048
     Dates: end: 20240917
  7. ESOMEPRAZOLE MAGNESIUM [Concomitant]
     Active Substance: ESOMEPRAZOLE MAGNESIUM
     Indication: Prophylaxis against gastrointestinal ulcer
     Dosage: 20 MILLIGRAM, QD
     Route: 048
     Dates: end: 20240917
  8. PITAVASTATIN CALCIUM [Concomitant]
     Active Substance: PITAVASTATIN CALCIUM
     Indication: Hyperlipidaemia
     Dosage: 2 MILLIGRAM, QD
     Route: 048
     Dates: end: 20240917
  9. CARBOCYSTEINE [Concomitant]
     Active Substance: CARBOCYSTEINE
     Indication: Combined pulmonary fibrosis and emphysema
     Dosage: 500 MILLIGRAM, BID
     Route: 048
     Dates: end: 20240917
  10. OLMESARTAN MEDOXOMIL [Concomitant]
     Active Substance: OLMESARTAN MEDOXOMIL
     Indication: Hypertension
     Dosage: 20 MILLIGRAM, QD
     Route: 048
     Dates: end: 20240917
  11. DIMEMORFAN PHOSPHATE [Concomitant]
     Active Substance: DIMEMORFAN PHOSPHATE
     Indication: Bronchitis
     Dosage: 10 MILLIGRAM, TID
     Route: 048
     Dates: end: 20240917
  12. OLODATEROL HYDROCHLORIDE\TIOTROPIUM BROMIDE MONOHYDRATE [Concomitant]
     Active Substance: OLODATEROL HYDROCHLORIDE\TIOTROPIUM BROMIDE MONOHYDRATE
     Indication: Combined pulmonary fibrosis and emphysema
     Dosage: UNK
     Dates: end: 20240917
  13. LEVOFLOXACIN HEMIHYDRATE [Concomitant]
     Active Substance: LEVOFLOXACIN
     Indication: Bronchitis
     Dosage: 250 MILLIGRAM, QD
     Route: 048
     Dates: start: 20240911, end: 20240915

REACTIONS (3)
  - Suicidal ideation [Recovered/Resolved]
  - Intentional overdose [Unknown]
  - Wrong technique in product usage process [Unknown]

NARRATIVE: CASE EVENT DATE: 20240916
